FAERS Safety Report 15436191 (Version 1)
Quarter: 2018Q4

REPORT INFORMATION
  Report Type: Spontaneous
  Country: US (occurrence: US)
  Receive Date: 20180927
  Receipt Date: 20180927
  Transmission Date: 20190204
  Serious: Yes (Other)
  Sender: FDA-Public Use
  Company Number: US-BAYER-2018-178157

PATIENT
  Age: 74 Year
  Sex: Female
  Weight: 120 kg

DRUGS (2)
  1. METHOTREXATE. [Concomitant]
     Active Substance: METHOTREXATE
     Dosage: UNK
  2. COPPERTONE UNKNOWN (AVOBENZONE\HOMOSALATE\OCTISALATE\OCTOCRYLENE\OXYBENZONE) [Suspect]
     Active Substance: AVOBENZONE\HOMOSALATE\OCTISALATE\OCTOCRYLENE\OXYBENZONE
     Dosage: UNK
     Route: 061

REACTIONS (3)
  - Gait disturbance [Unknown]
  - Blister [Recovering/Resolving]
  - Sunburn [Unknown]

NARRATIVE: CASE EVENT DATE: 20180901
